FAERS Safety Report 23792600 (Version 3)
Quarter: 2024Q2

REPORT INFORMATION
  Report Type: Spontaneous
  Country: US (occurrence: US)
  Receive Date: 20240429
  Receipt Date: 20240430
  Transmission Date: 20240716
  Serious: Yes (Hospitalization)
  Sender: FDA-Public Use
  Company Number: US-PFIZER INC-202400096276

PATIENT
  Age: 86 Year
  Sex: Female

DRUGS (2)
  1. IBRANCE [Suspect]
     Active Substance: PALBOCICLIB
     Indication: Breast cancer female
     Dosage: 75 MG, CYCLIC (ONCE A DAY, FOR 3 WEEKS AND THEN A WEEK OFF)
     Route: 048
     Dates: start: 202209
  2. LASIX [Concomitant]
     Active Substance: FUROSEMIDE
     Dosage: 20 MG

REACTIONS (3)
  - Respiratory failure [Unknown]
  - Illness [Unknown]
  - Weight decreased [Unknown]
